FAERS Safety Report 5314892-5 (Version None)
Quarter: 2007Q2

REPORT INFORMATION
  Report Type: 
  Country: None (occurrence: None)
  Receive Date: 20070502
  Receipt Date: 20070420
  Transmission Date: 20071010
  Serious: Yes (Other)
  Sender: FDA-Public Use
  Company Number: BR-ROCHE-494487

PATIENT
  Sex: Female

DRUGS (2)
  1. ISOTRETINOIN [Suspect]
     Indication: DRUG USE FOR UNKNOWN INDICATION
     Route: 048
     Dates: start: 20070401
  2. 1 CONCOMITANT UNSPECIFIED DRUG [Concomitant]
     Indication: CONTRACEPTION
     Route: 065

REACTIONS (2)
  - NO ADVERSE EFFECT [None]
  - PREGNANCY [None]
